FAERS Safety Report 4854731-X (Version None)
Quarter: 2005Q4

REPORT INFORMATION
  Report Type: 
  Country: None (occurrence: None)
  Receive Date: 20051214
  Receipt Date: 20051214
  Transmission Date: 20060501
  Serious: No
  Sender: FDA-Public Use
  Company Number: None

PATIENT
  Age: 54 Year
  Sex: Male
  Weight: 88.905 kg

DRUGS (19)
  1. EZETIMIBE    10 MG [Suspect]
     Indication: HYPERLIPIDAEMIA
     Dosage: 10 MG  DAILY  PO
     Route: 048
  2. ABSORBASE [Concomitant]
  3. ACETAMINOPHEN [Concomitant]
  4. ALBUTEROL SULFATE AND IPRATROPIUM BROMIDE [Concomitant]
  5. ALBUTEROL [Concomitant]
  6. ASPIRIN [Concomitant]
  7. BACITRACIN / POLYMYXIN [Concomitant]
  8. CLOTRIMAZOLE [Concomitant]
  9. LANOXIN [Concomitant]
  10. FUROSEMIDE [Concomitant]
  11. HYDRALAZINE HCL [Concomitant]
  12. ISOSORBIDE DINITRATE [Concomitant]
  13. LISINOPRIL [Concomitant]
  14. METOPROLOL TARTRATE [Concomitant]
  15. NITROGLYCERIN [Concomitant]
  16. RABEPRAZOLE SODIUM [Concomitant]
  17. SIMETHICONE [Concomitant]
  18. SIMVASTATIN [Concomitant]
  19. TRIAMCINOLONE [Concomitant]

REACTIONS (3)
  - ABDOMINAL PAIN [None]
  - FLATULENCE [None]
  - HEADACHE [None]
